FAERS Safety Report 5999425-2 (Version None)
Quarter: 2008Q4

REPORT INFORMATION
  Report Type: 
  Country: None (occurrence: None)
  Receive Date: 20081215
  Receipt Date: 20081208
  Transmission Date: 20090506
  Serious: Yes (Death)
  Sender: FDA-Public Use
  Company Number: US-AMGEN-US322750

PATIENT
  Sex: Female

DRUGS (6)
  1. ARANESP [Suspect]
     Indication: ACUTE MYELOID LEUKAEMIA
     Route: 065
  2. FEXOFENADINE [Concomitant]
     Route: 065
  3. ADVAIR HFA [Concomitant]
     Route: 065
  4. DETROL [Concomitant]
     Route: 065
  5. ATACAND [Concomitant]
     Route: 065
  6. CRESTOR [Concomitant]
     Route: 065

REACTIONS (1)
  - ACUTE MYELOID LEUKAEMIA [None]
